FAERS Safety Report 21778995 (Version 1)
Quarter: 2022Q4

REPORT INFORMATION
  Report Type: Spontaneous
  Country: US (occurrence: US)
  Receive Date: 20221226
  Receipt Date: 20221226
  Transmission Date: 20230112
  Serious: No
  Sender: FDA-Public Use
  Company Number: US-SA-SAC20221223001419

PATIENT
  Age: 46 Year
  Sex: Female

DRUGS (6)
  1. KEVZARA [Suspect]
     Active Substance: SARILUMAB
     Indication: Rheumatoid arthritis
     Dosage: 200 MG, QOW
     Route: 058
     Dates: start: 20220713
  2. LAMOTRIGINE [Suspect]
     Active Substance: LAMOTRIGINE
     Dosage: 75MG
  3. LISINOPRIL [Suspect]
     Active Substance: LISINOPRIL
     Dosage: 75MG
  4. PREGABALIN [Suspect]
     Active Substance: PREGABALIN
     Dosage: 75MG
  5. VITAMIN D3 [Suspect]
     Active Substance: CHOLECALCIFEROL
     Dosage: 200MG
  6. LINZESS [Suspect]
     Active Substance: LINACLOTIDE
     Dosage: 75MG

REACTIONS (2)
  - Immune system disorder [Recovered/Resolved]
  - COVID-19 [Recovered/Resolved]
